FAERS Safety Report 5504285-X (Version None)
Quarter: 2007Q4

REPORT INFORMATION
  Report Type: 
  Country: None (occurrence: None)
  Receive Date: 20071101
  Receipt Date: 20071023
  Transmission Date: 20080405
  Serious: Yes (Hospitalization)
  Sender: FDA-Public Use
  Company Number: PHBS2007JP16997

PATIENT
  Age: 39 Year
  Sex: Female

DRUGS (1)
  1. VOLTAREN [Suspect]
     Indication: BACK PAIN
     Dosage: 50 MG/D
     Route: 054

REACTIONS (10)
  - ABDOMINAL PAIN LOWER [None]
  - ANAEMIA [None]
  - APPENDICECTOMY [None]
  - APPENDICITIS [None]
  - ENTEROCOLITIS [None]
  - HAEMATOCHEZIA [None]
  - HYPERPLASIA [None]
  - INFLAMMATION [None]
  - LARGE INTESTINAL ULCER HAEMORRHAGE [None]
  - PYREXIA [None]
